FAERS Safety Report 6759411-1 (Version None)
Quarter: 2010Q2

REPORT INFORMATION
  Report Type: 
  Country: None (occurrence: None)
  Receive Date: 20100603
  Receipt Date: 20100524
  Transmission Date: 20101027
  Serious: Yes (Death)
  Sender: FDA-Public Use
  Company Number: OPIR20100020

PATIENT
  Age: 24 Year
  Sex: Male
  Weight: 127.0072 kg

DRUGS (9)
  1. OPANA [Suspect]
     Indication: DRUG USE FOR UNKNOWN INDICATION
     Dosage: ORAL
     Route: 048
  2. ETHANOL (ETHANOL) [Suspect]
     Indication: DRUG USE FOR UNKNOWN INDICATION
  3. DIAZEPAM [Suspect]
     Indication: DRUG USE FOR UNKNOWN INDICATION
  4. NORDIAZEPAM (NORDAZEPAM) [Suspect]
     Indication: DRUG USE FOR UNKNOWN INDICATION
  5. CLONAZEPAM [Suspect]
     Indication: DRUG USE FOR UNKNOWN INDICATION
  6. HYDROCODONE BITARTRATE [Suspect]
     Indication: DRUG USE FOR UNKNOWN INDICATION
  7. OXYCODONE HCL [Suspect]
     Indication: DRUG USE FOR UNKNOWN INDICATION
  8. ACETAMINOPHEN (PRACETAMOL) (PRACETAMOL) [Concomitant]
  9. SALICYLATE (SALICYLATES) [Concomitant]

REACTIONS (16)
  - ACCIDENTAL DEATH [None]
  - ALCOHOL POISONING [None]
  - ARTERIOSCLEROSIS CORONARY ARTERY [None]
  - ASPHYXIA [None]
  - CARDIOMEGALY [None]
  - CYANOSIS [None]
  - DRUG TOXICITY [None]
  - HEPATIC STEATOSIS [None]
  - INJECTION SITE HAEMATOMA [None]
  - LEFT VENTRICULAR HYPERTROPHY [None]
  - LOSS OF CONSCIOUSNESS [None]
  - PNEUMOCONIOSIS [None]
  - PULMONARY CONGESTION [None]
  - PULMONARY OEDEMA [None]
  - SCAR [None]
  - WRONG TECHNIQUE IN DRUG USAGE PROCESS [None]
